FAERS Safety Report 5903418-0 (Version None)
Quarter: 2008Q3

REPORT INFORMATION
  Report Type: 
  Country: None (occurrence: None)
  Receive Date: 20080930
  Receipt Date: 20080918
  Transmission Date: 20090109
  Serious: Yes (Hospitalization, Other)
  Sender: FDA-Public Use
  Company Number: JP-ASTRAZENECA-2008AP07026

PATIENT
  Age: 8231 Day
  Sex: Female

DRUGS (6)
  1. SEROQUEL [Suspect]
     Indication: DEPRESSION
     Route: 048
     Dates: end: 20080831
  2. SEROQUEL [Suspect]
     Route: 048
     Dates: end: 20080831
  3. DEPAKENE [Suspect]
     Indication: DEPRESSION
     Route: 048
     Dates: end: 20080831
  4. LOXONIN [Suspect]
     Route: 048
  5. VALTREX [Concomitant]
     Indication: DEPRESSION
     Dates: end: 20080831
  6. FLOMOX [Concomitant]
     Dates: end: 20080831

REACTIONS (8)
  - CONVULSION [None]
  - EXTRASYSTOLES [None]
  - HYPOCALCAEMIA [None]
  - HYPOKALAEMIA [None]
  - HYPOMAGNESAEMIA [None]
  - LOSS OF CONSCIOUSNESS [None]
  - OVERDOSE [None]
  - TACHYCARDIA [None]
